FAERS Safety Report 4433389-8 (Version None)
Quarter: 2004Q3

REPORT INFORMATION
  Report Type: 
  Country: None (occurrence: None)
  Receive Date: 20040824
  Receipt Date: 20040816
  Transmission Date: 20050211
  Serious: Yes (Life-Threatening, Other)
  Sender: FDA-Public Use
  Company Number: 2004229070GB

PATIENT
  Age: 28 Year
  Sex: Female
  Weight: 49 kg

DRUGS (4)
  1. CYTOTEC [Suspect]
     Indication: ABORTION
     Dosage: 800 MCG/DAY, VAGINAL
     Route: 067
     Dates: start: 20040805
  2. MIFEPRISTONE (MIFEPRISTONE) [Concomitant]
  3. FERROUS SULFATE TAB [Concomitant]
  4. AMOXICILLIN [Concomitant]

REACTIONS (4)
  - ERYTHEMA [None]
  - FACE OEDEMA [None]
  - PRURITUS GENERALISED [None]
  - RASH [None]
